FAERS Safety Report 9793395 (Version 2)
Quarter: 2014Q1

REPORT INFORMATION
  Report Type: Report from Study
  Country: US (occurrence: US)
  Receive Date: 20140102
  Receipt Date: 20140117
  Transmission Date: 20141002
  Serious: Yes (Death, Hospitalization)
  Sender: FDA-Public Use
  Company Number: US-PURDUE-USA-2013-0109865

PATIENT
  Age: 71 Year
  Sex: Male

DRUGS (14)
  1. OXYCODONE HYDROCHLORIDE (SIMILAR TO NDA 22-272) [Suspect]
     Indication: PAIN PROPHYLAXIS
     Dosage: UNK
     Route: 048
     Dates: start: 20130530, end: 20130707
  2. MORPHINE SULFATE (SIMILAR TO NDA 19-516) [Suspect]
     Indication: PRODUCT USED FOR UNKNOWN INDICATION
     Route: 048
  3. COLACE [Suspect]
     Indication: CONSTIPATION PROPHYLAXIS
     Dosage: UNK
     Route: 048
     Dates: start: 20130514, end: 20130707
  4. BLINDED TAS-102 [Suspect]
     Indication: COLORECTAL CANCER METASTATIC
     Dosage: 70 MG, BID
     Route: 048
     Dates: start: 20130530, end: 20130610
  5. LOVENOX [Suspect]
     Indication: PRODUCT USED FOR UNKNOWN INDICATION
     Route: 065
  6. LORAZEPAM [Suspect]
     Indication: ANXIETY
     Dosage: UNK
     Route: 065
     Dates: start: 20130506, end: 20130707
  7. ONDANSETRON HYDROCHLORIDE [Suspect]
     Indication: PROPHYLAXIS OF NAUSEA AND VOMITING
     Dosage: UNK
     Route: 065
     Dates: start: 20111025, end: 20130707
  8. VITAMIN B COMPLEX [Suspect]
     Indication: VITAMIN SUPPLEMENTATION
     Dosage: UNK, PRN
     Route: 065
     Dates: start: 20130514, end: 20130707
  9. VITAMIN B12 /00056201/ [Suspect]
     Indication: VITAMIN SUPPLEMENTATION
     Dosage: UNK, PRN
     Route: 065
     Dates: start: 20111025, end: 20130707
  10. PAROXETINE [Suspect]
     Indication: DEPRESSION
     Dosage: UNK
     Route: 065
     Dates: start: 20111025, end: 20130707
  11. METOPROLOL [Suspect]
     Indication: HYPERTENSION
     Dosage: UNK
     Route: 065
     Dates: start: 20110823, end: 20130707
  12. DIPHENOXYLATE W/ATROPINE SULFATE [Suspect]
     Indication: DIARRHOEA
     Dosage: UNK, PRN
     Route: 065
     Dates: start: 20111212, end: 20130707
  13. VITAMIN D3 [Suspect]
     Indication: PRODUCT USED FOR UNKNOWN INDICATION
     Route: 065
  14. WARFARIN [Concomitant]
     Indication: PULMONARY EMBOLISM
     Dosage: UNK
     Route: 065
     Dates: start: 20130501, end: 20130707

REACTIONS (6)
  - Haemorrhage intracranial [Fatal]
  - Cardio-respiratory arrest [Fatal]
  - Acidosis [Fatal]
  - Renal failure acute [Fatal]
  - Arthralgia [Unknown]
  - Pain in extremity [Unknown]
